FAERS Safety Report 22673735 (Version 3)
Quarter: 2023Q4

REPORT INFORMATION
  Report Type: Spontaneous
  Country: US (occurrence: US)
  Receive Date: 20230705
  Receipt Date: 20231020
  Transmission Date: 20240109
  Serious: Yes (Hospitalization)
  Sender: FDA-Public Use
  Company Number: US-PFIZER INC-202101787753

PATIENT
  Age: 88 Year
  Sex: Male

DRUGS (2)
  1. VYNDAMAX [Suspect]
     Active Substance: TAFAMIDIS
     Indication: Cardiac disorder
     Dosage: 61 MG, DAILY (61MG. ONE CAPSULE DAILY BY MOUTH)
     Route: 048
     Dates: end: 20211210
  2. VYNDAMAX [Suspect]
     Active Substance: TAFAMIDIS
     Dosage: UNK

REACTIONS (4)
  - Fluid retention [Unknown]
  - Cardiac disorder [Unknown]
  - Drug ineffective [Unknown]
  - Ill-defined disorder [Unknown]
